FAERS Safety Report 11100303 (Version 1)
Quarter: 2015Q2

REPORT INFORMATION
  Report Type: Report from Study
  Country: DE (occurrence: DE)
  Receive Date: 20150508
  Receipt Date: 20150508
  Transmission Date: 20150821
  Serious: Yes (Hospitalization)
  Sender: FDA-Public Use
  Company Number: DE-ABBVIE-15P-062-1386089-00

PATIENT
  Age: 67 Year
  Sex: Female

DRUGS (1)
  1. DUODOPA [Suspect]
     Active Substance: CARBIDOPA\LEVODOPA
     Indication: PARKINSON^S DISEASE
     Dosage: CRD 3.4 ML/H?CRN 2.0 ML/H
     Route: 050
     Dates: start: 20070501

REACTIONS (1)
  - Gastroenteritis clostridial [Not Recovered/Not Resolved]

NARRATIVE: CASE EVENT DATE: 20150503
